FAERS Safety Report 21762972 (Version 1)
Quarter: 2022Q4

REPORT INFORMATION
  Report Type: Spontaneous
  Country: GB (occurrence: GB)
  Receive Date: 20221221
  Receipt Date: 20221221
  Transmission Date: 20230113
  Serious: Yes (Hospitalization, Other)
  Sender: FDA-Public Use
  Company Number: GB-MHRA-MED-202212121049173500-YTHRV

PATIENT
  Age: 28 Year
  Sex: Male

DRUGS (1)
  1. BARICITINIB [Suspect]
     Active Substance: BARICITINIB
     Indication: Dermatitis atopic
     Dosage: UNK UNK, UNKNOWN
     Route: 065
     Dates: start: 20220101

REACTIONS (6)
  - Rectal haemorrhage [Unknown]
  - Diarrhoea [Unknown]
  - Weight decreased [Unknown]
  - Decreased appetite [Unknown]
  - Abdominal distension [Unknown]
  - Abdominal pain [Unknown]

NARRATIVE: CASE EVENT DATE: 20220401
